FAERS Safety Report 12807239 (Version 3)
Quarter: 2016Q4

REPORT INFORMATION
  Report Type: Spontaneous
  Country: HU (occurrence: HU)
  Receive Date: 20161004
  Receipt Date: 20161020
  Transmission Date: 20170207
  Serious: Yes (Death, Hospitalization)
  Sender: FDA-Public Use
  Company Number: HU-PFIZER INC-2016435062

PATIENT
  Age: 87 Year
  Sex: Male
  Weight: 70 kg

DRUGS (7)
  1. CAPRO [Concomitant]
     Dosage: 1X150 MG
  2. FURON [Concomitant]
     Active Substance: FUROSEMIDE
     Dosage: 1 DF, 1X/DAY (IN THE MORNING)
  3. EXFORGE [Concomitant]
     Active Substance: AMLODIPINE BESYLATE\VALSARTAN
     Dosage: 10 MG/160 MG
  4. KALDYUM [Concomitant]
     Active Substance: POTASSIUM CHLORIDE
     Dosage: 1 DF, DAILY (IN THE MORNING)
  5. AKTIFERRIN [Concomitant]
     Active Substance: FERROUS SULFATE\SERINE
     Dosage: 2X1 CAPS.
  6. SUTENT [Suspect]
     Active Substance: SUNITINIB MALATE
     Indication: GASTROINTESTINAL STROMAL TUMOUR
     Dosage: 50 MG, 1X/DAY, FOR 2 WEEKS SUTENT THEN 1 WEEK BREAK
     Route: 048
     Dates: start: 20160822, end: 20160912
  7. MILGAMMA N [Concomitant]
     Active Substance: BENFOTIAMINE\CYANOCOBALAMIN\PYRIDOXINE HYDROCHLORIDE
     Dosage: 4X1 CAPS.

REACTIONS (14)
  - Neoplasm progression [Fatal]
  - Asthenia [Unknown]
  - Fluid retention [Unknown]
  - General physical health deterioration [Unknown]
  - Pleural effusion [Recovering/Resolving]
  - Blood uric acid increased [Unknown]
  - Oedema peripheral [Unknown]
  - Hyperalbuminaemia [Unknown]
  - Anaemia [Not Recovered/Not Resolved]
  - Fatigue [Not Recovered/Not Resolved]
  - Penile oedema [Unknown]
  - Dyspnoea exertional [Unknown]
  - Cough [Unknown]
  - Scrotal oedema [Unknown]

NARRATIVE: CASE EVENT DATE: 20160912
